FAERS Safety Report 9049759 (Version 2)
Quarter: 2013Q1

REPORT INFORMATION
  Report Type: Spontaneous
  Country: US (occurrence: US)
  Receive Date: 20130205
  Receipt Date: 20130301
  Transmission Date: 20140127
  Serious: Yes (Hospitalization)
  Sender: FDA-Public Use
  Company Number: US-FRI-1000042279

PATIENT
  Age: 59 Year
  Sex: Female

DRUGS (3)
  1. VIIBRYD [Suspect]
     Indication: DEPRESSION
     Dates: start: 2012
  2. VIIBRYD [Suspect]
     Indication: DEPRESSION
     Dosage: 40 MG
     Dates: end: 201301
  3. XANAX [Suspect]
     Dates: end: 201301

REACTIONS (3)
  - Mania [Recovering/Resolving]
  - Bipolar disorder [Not Recovered/Not Resolved]
  - Intentional overdose [Recovered/Resolved]
